FAERS Safety Report 7327317-5 (Version None)
Quarter: 2011Q1

REPORT INFORMATION
  Report Type: 
  Country: None (occurrence: None)
  Receive Date: 20110302
  Receipt Date: 20110210
  Transmission Date: 20110831
  Serious: Yes (Death, Other)
  Sender: FDA-Public Use
  Company Number: US-AMGEN-US341613

PATIENT
  Sex: Female

DRUGS (4)
  1. IMMUNOGLOBULINS [Concomitant]
     Dosage: UNK UNK, UNK
     Route: 042
  2. NPLATE [Suspect]
     Indication: IDIOPATHIC THROMBOCYTOPENIC PURPURA
     Dosage: 3 A?G/KG, QWK
     Route: 065
     Dates: start: 20090306, end: 20090327
  3. CORTICOSTEROID NOS [Concomitant]
     Dosage: UNK UNK, UNK
     Route: 065
  4. RITUXIMAB [Concomitant]
     Dosage: UNK UNK, UNK
     Route: 065

REACTIONS (2)
  - DEATH [None]
  - DRUG INEFFECTIVE [None]
